FAERS Safety Report 7214461-6 (Version None)
Quarter: 2011Q1

REPORT INFORMATION
  Report Type: 
  Country: None (occurrence: None)
  Receive Date: 20110107
  Receipt Date: 20110104
  Transmission Date: 20110831
  Serious: Yes (Death)
  Sender: FDA-Public Use
  Company Number: PHHY2010US86130

PATIENT
  Sex: Male
  Weight: 62.585 kg

DRUGS (4)
  1. LORAZEPAM [Concomitant]
  2. ZOLPIDEM [Concomitant]
  3. EXJADE [Suspect]
     Indication: ACUTE MYELOID LEUKAEMIA (IN REMISSION)
     Dosage: 2000 MG, QD
     Route: 048
     Dates: start: 20081202, end: 20101224
  4. CIPRO [Concomitant]

REACTIONS (3)
  - PLATELET COUNT DECREASED [None]
  - CEREBROVASCULAR ACCIDENT [None]
  - NERVOUS SYSTEM DISORDER [None]
